FAERS Safety Report 10245986 (Version 2)
Quarter: 2014Q2

REPORT INFORMATION
  Report Type: Spontaneous
  Country: TR (occurrence: TR)
  Receive Date: 20140619
  Receipt Date: 20140624
  Transmission Date: 20141212
  Serious: Yes (Hospitalization, Other)
  Sender: FDA-Public Use
  Company Number: PHHY2014TR075131

PATIENT
  Age: 18 Year
  Sex: Female

DRUGS (1)
  1. EXFORGE [Suspect]
     Dosage: 20 DF, ONCE/SINGLE

REACTIONS (4)
  - Suicide attempt [Recovered/Resolved]
  - Hypotension [Recovered/Resolved]
  - Arrhythmia [Recovered/Resolved]
  - Wrong patient received medication [Unknown]
